FAERS Safety Report 9407404 (Version 1)
Quarter: 2013Q3

REPORT INFORMATION
  Report Type: Spontaneous
  Country: US (occurrence: US)
  Receive Date: 20130718
  Receipt Date: 20130718
  Transmission Date: 20140515
  Serious: No
  Sender: FDA-Public Use
  Company Number: US-BAYER-2013-066017

PATIENT
  Sex: 0

DRUGS (1)
  1. NEXAVAR [Suspect]

REACTIONS (1)
  - Rash erythematous [None]
